FAERS Safety Report 5804996-2 (Version None)
Quarter: 2008Q3

REPORT INFORMATION
  Report Type: 
  Country: None (occurrence: None)
  Receive Date: 20080709
  Receipt Date: 20080627
  Transmission Date: 20090109
  Serious: Yes (Life-Threatening, Other)
  Sender: FDA-Public Use
  Company Number: JP-PFIZER INC-2008054771

PATIENT
  Age: 67 Year
  Sex: Female

DRUGS (3)
  1. ZYVOX [Suspect]
     Indication: PNEUMONIA STAPHYLOCOCCAL
     Dosage: DAILY DOSE:1200MG
     Route: 042
     Dates: start: 20080620, end: 20080625
  2. BENAMBAX [Suspect]
  3. PAZUCROSS [Suspect]
     Route: 042

REACTIONS (2)
  - ELECTROCARDIOGRAM QT PROLONGED [None]
  - PLATELET COUNT DECREASED [None]
